FAERS Safety Report 8623340-9 (Version None)
Quarter: 2012Q3

REPORT INFORMATION
  Report Type: 
  Country: None (occurrence: None)
  Receive Date: 20120827
  Receipt Date: 20120815
  Transmission Date: 20120928
  Serious: Yes (Other)
  Sender: FDA-Public Use
  Company Number: DE-CELGENEUS-062-21880-12081720

PATIENT
  Age: 87 Year
  Sex: Male
  Weight: 67.9 kg

DRUGS (11)
  1. ASPIRIN [Concomitant]
     Indication: THROMBOSIS PROPHYLAXIS
     Route: 065
  2. REVLIMID [Suspect]
     Dosage: 10 MILLIGRAM
     Route: 048
     Dates: start: 20111020, end: 20111109
  3. DEXAMETHASONE [Suspect]
     Indication: MULTIPLE MYELOMA
     Route: 048
     Dates: start: 20110407, end: 20120410
  4. REVLIMID [Suspect]
     Dosage: 5 MILLIGRAM
     Route: 048
     Dates: start: 20120726
  5. DEXAMETHASONE [Suspect]
     Dosage: 8 MILLIGRAM
     Route: 048
     Dates: start: 20110505, end: 20110505
  6. REVLIMID [Suspect]
     Dosage: 5 MILLIGRAM
     Route: 048
     Dates: start: 20111117, end: 20111207
  7. IBANDRONATE SODIUM [Concomitant]
     Route: 041
  8. HYDROMORPHONE HCL [Concomitant]
     Route: 048
  9. DEXAMETHASONE [Suspect]
     Route: 048
     Dates: start: 20110630, end: 20110716
  10. REVLIMID [Suspect]
     Indication: MULTIPLE MYELOMA
     Dosage: 5 MILLIGRAM
     Route: 048
     Dates: start: 20110407, end: 20110413
  11. DEXAMETHASONE [Suspect]
     Dosage: 8 MILLIGRAM
     Route: 048
     Dates: start: 20120726

REACTIONS (1)
  - SQUAMOUS CELL CARCINOMA OF SKIN [None]
